FAERS Safety Report 7974394-4 (Version None)
Quarter: 2011Q4

REPORT INFORMATION
  Report Type: 
  Country: None (occurrence: None)
  Receive Date: 20111213
  Receipt Date: 20111201
  Transmission Date: 20120403
  Serious: No
  Sender: FDA-Public Use
  Company Number: US-BAYER-2011-115909

PATIENT
  Age: 56 Year
  Sex: Female

DRUGS (1)
  1. ANGELIQ [Suspect]
     Indication: HOT FLUSH
     Dosage: UNK UNK, QD
     Route: 048

REACTIONS (4)
  - ALOPECIA [None]
  - NO ADVERSE EVENT [None]
  - BREAST ENLARGEMENT [None]
  - HYPOAESTHESIA [None]
